FAERS Safety Report 6044440-6 (Version None)
Quarter: 2009Q1

REPORT INFORMATION
  Report Type: 
  Country: None (occurrence: None)
  Receive Date: 20090120
  Receipt Date: 20090106
  Transmission Date: 20090719
  Serious: Yes (Other)
  Sender: FDA-Public Use
  Company Number: US-PFIZER INC-2008059672

PATIENT
  Sex: Female

DRUGS (7)
  1. CHANTIX [Suspect]
     Route: 048
     Dates: start: 20080521, end: 20080525
  2. XANAX [Interacting]
  3. ALL OTHER THERAPEUTIC PRODUCTS [Interacting]
  4. ALL OTHER THERAPEUTIC PRODUCTS [Interacting]
     Indication: ANXIETY
  5. ALL OTHER THERAPEUTIC PRODUCTS [Interacting]
     Indication: PANIC ATTACK
  6. ALL OTHER THERAPEUTIC PRODUCTS [Interacting]
     Indication: BIPOLAR DISORDER
  7. ALL OTHER THERAPEUTIC PRODUCTS [Interacting]
     Indication: DEPRESSION

REACTIONS (5)
  - CRYING [None]
  - DRUG INTERACTION [None]
  - HYPERSENSITIVITY [None]
  - MALAISE [None]
  - PANIC ATTACK [None]
